FAERS Safety Report 16568952 (Version 1)
Quarter: 2019Q3

REPORT INFORMATION
  Report Type: Spontaneous
  Country: DE (occurrence: DE)
  Receive Date: 20190713
  Receipt Date: 20190713
  Transmission Date: 20191004
  Serious: Yes (Hospitalization)
  Sender: FDA-Public Use
  Company Number: DE-TEVA-2019-DE-1075928

PATIENT
  Age: 80 Year
  Sex: Female
  Weight: 55 kg

DRUGS (9)
  1. SPIOLTO RESPIMAT [Concomitant]
     Active Substance: OLODATEROL HYDROCHLORIDE\TIOTROPIUM BROMIDE MONOHYDRATE
     Dosage: 2 PUFFS; 1-0-0, DOSING AEROSOL
     Route: 048
  2. METFORMIN [Concomitant]
     Active Substance: METFORMIN HYDROCHLORIDE
     Dosage: 850 MG, 1-0-1, TABLETS
     Route: 048
  3. PANTOZOL [Concomitant]
     Active Substance: PANTOPRAZOLE SODIUM
     Dosage: 20 MG, 0-0-1, TABLETS
     Route: 048
  4. CLOPIDOGREL [Suspect]
     Active Substance: CLOPIDOGREL BISULFATE
     Dosage: 75 MG, RECENTLY PAUSED, TABLETS
     Route: 048
  5. SIMVASTATIN. [Concomitant]
     Active Substance: SIMVASTATIN
     Dosage: 40 MG, 0-0-1, TABLETS
     Route: 048
  6. MOXONIDIN [Concomitant]
     Active Substance: MOXONIDINE
     Dosage: 0.4 MG, 1-0-1, TABLETS
     Route: 048
  7. CORVATON [Concomitant]
     Active Substance: MOLSIDOMINE
     Dosage: 8 MG, 1-0-1, TABLETS
     Route: 048
  8. HCT [Concomitant]
     Active Substance: HYDROCHLOROTHIAZIDE
     Dosage: 12.5 MG, 1-0-0, TABLETS
     Route: 048
  9. LERCANIDIPIN [Concomitant]
     Active Substance: LERCANIDIPINE
     Dosage: 10 MG, 0-0-1, TABLETS
     Route: 048

REACTIONS (1)
  - Anal haemorrhage [Unknown]

NARRATIVE: CASE EVENT DATE: 20170417
